FAERS Safety Report 19496233 (Version 1)
Quarter: 2021Q3

REPORT INFORMATION
  Report Type: Spontaneous
  Country: US (occurrence: US)
  Receive Date: 20210702
  Receipt Date: 20210702
  Transmission Date: 20211014
  Serious: Yes (Other)
  Sender: FDA-Public Use
  Company Number: None

PATIENT
  Age: 30 Year
  Sex: Female
  Weight: 42.75 kg

DRUGS (1)
  1. CIPROFLOXACIN. [Suspect]
     Active Substance: CIPROFLOXACIN
     Indication: URINARY TRACT INFECTION
     Dates: start: 20201220, end: 20201225

REACTIONS (10)
  - Skin burning sensation [None]
  - Electric shock sensation [None]
  - Neuralgia [None]
  - Toothache [None]
  - Neuropathy peripheral [None]
  - Restless legs syndrome [None]
  - Muscle twitching [None]
  - Facial pain [None]
  - Muscular weakness [None]
  - Oral pain [None]

NARRATIVE: CASE EVENT DATE: 20210201
